FAERS Safety Report 13084796 (Version 1)
Quarter: 2017Q1

REPORT INFORMATION
  Report Type: Spontaneous
  Country: US (occurrence: US)
  Receive Date: 20170103
  Receipt Date: 20170103
  Transmission Date: 20170428
  Serious: Yes (Hospitalization)
  Sender: FDA-Public Use
  Company Number: None

PATIENT
  Age: 68 Year
  Sex: Male
  Weight: 95.1 kg

DRUGS (2)
  1. DULOXETINE. [Suspect]
     Active Substance: DULOXETINE
     Indication: BIPOLAR DISORDER
     Route: 048
     Dates: start: 20160922, end: 20161213
  2. DULOXETINE. [Suspect]
     Active Substance: DULOXETINE
     Indication: MANIA
     Route: 048
     Dates: start: 20160922, end: 20161213

REACTIONS (2)
  - Hallucination [None]
  - Agitation [None]

NARRATIVE: CASE EVENT DATE: 20161213
